FAERS Safety Report 8252630-7 (Version None)
Quarter: 2012Q2

REPORT INFORMATION
  Report Type: 
  Country: None (occurrence: None)
  Receive Date: 20120402
  Receipt Date: 20110727
  Transmission Date: 20120825
  Serious: No
  Sender: FDA-Public Use
  Company Number: US-ABBOTT-11P-163-0841870-00

PATIENT
  Sex: Male
  Weight: 97.61 kg

DRUGS (3)
  1. METOPROLOL TARTRATE [Concomitant]
     Indication: HYPERTENSION
  2. LOVASTATIN [Concomitant]
     Indication: BLOOD CHOLESTEROL INCREASED
  3. ANDROGEL [Suspect]
     Indication: BLOOD TESTOSTERONE DECREASED
     Dates: start: 20110719

REACTIONS (1)
  - OEDEMA PERIPHERAL [None]
